FAERS Safety Report 9870138 (Version 2)
Quarter: 2014Q1

REPORT INFORMATION
  Report Type: Report from Study
  Country: JP (occurrence: JP)
  Receive Date: 20140205
  Receipt Date: 20140205
  Transmission Date: 20141002
  Serious: Yes (Other)
  Sender: FDA-Public Use
  Company Number: JP-009507513-1312JPN002779

PATIENT
  Age: 37 Year
  Sex: Female

DRUGS (5)
  1. FOLLISTIM [Suspect]
     Indication: IN VITRO FERTILISATION
     Dosage: 300 IU  (UNDER 1000 UNIT), QD
     Route: 058
     Dates: start: 20110731, end: 20110801
  2. FOLLISTIM [Suspect]
     Dosage: 150 IU (UNDER 1000 UNIT) , QD
     Route: 058
     Dates: start: 20110802, end: 20110805
  3. GANIREST SUBCUTANEOUS 0.25MG SYRINGE [Suspect]
     Indication: PREVENTION OF PREMATURE OVULATION
     Dosage: 0.25 MG, QD
     Route: 058
     Dates: start: 20110806, end: 20110807
  4. MENOTROPINS [Concomitant]
     Indication: IN VITRO FERTILISATION
     Dosage: TOTAL DAILY DOSE 150 (UNDER 1000 UNIT), QD
     Route: 030
     Dates: start: 20130806, end: 20130808
  5. GONADOTROPIN, CHORIONIC [Concomitant]
     Indication: OVULATION INDUCTION
     Dosage: TOTAL DAILY DOSE 5 THOUSAND-MILLION UNIT, QD
     Route: 065
     Dates: start: 20110808, end: 20110808

REACTIONS (1)
  - Foetal death [Recovered/Resolved]
